FAERS Safety Report 19222150 (Version 1)
Quarter: 2021Q2

REPORT INFORMATION
  Report Type: Spontaneous
  Country: DE (occurrence: DE)
  Receive Date: 20210505
  Receipt Date: 20210505
  Transmission Date: 20210717
  Serious: Yes (Hospitalization)
  Sender: FDA-Public Use
  Company Number: DE-TAKEDA-2021TUS028409

PATIENT
  Age: 73 Year
  Sex: Female

DRUGS (5)
  1. PREDNISOLONE. [Concomitant]
     Active Substance: PREDNISOLONE
     Indication: PRODUCT USED FOR UNKNOWN INDICATION
     Dosage: 10 MILLIGRAM, QD
     Route: 065
  2. ADENURIC [Suspect]
     Active Substance: FEBUXOSTAT
     Indication: HYPERURICAEMIA
     Dosage: 80 MILLIGRAM, QD
     Route: 048
     Dates: start: 202011, end: 202102
  3. CANDESARTAN. [Concomitant]
     Active Substance: CANDESARTAN
     Indication: HYPERTENSION
     Dosage: 16 MILLIGRAM, QD
     Route: 065
  4. TAPENTADOL [Concomitant]
     Active Substance: TAPENTADOL
     Indication: PAIN
     Dosage: UNK
     Route: 065
  5. OXYCODONE [Concomitant]
     Active Substance: OXYCODONE
     Indication: PAIN
     Dosage: UNK
     Route: 065

REACTIONS (12)
  - Skin reaction [Not Recovered/Not Resolved]
  - Pruritus [Not Recovered/Not Resolved]
  - Skin disorder [Not Recovered/Not Resolved]
  - Wound [Not Recovered/Not Resolved]
  - Bullous haemorrhagic dermatosis [Not Recovered/Not Resolved]
  - Injury [Not Recovered/Not Resolved]
  - Dermatitis [Not Recovered/Not Resolved]
  - Self-medication [Not Recovered/Not Resolved]
  - Skin lesion [Not Recovered/Not Resolved]
  - Drug eruption [Not Recovered/Not Resolved]
  - Pain [Not Recovered/Not Resolved]
  - Skin weeping [Not Recovered/Not Resolved]

NARRATIVE: CASE EVENT DATE: 202102
